FAERS Safety Report 5013483-3 (Version None)
Quarter: 2006Q2

REPORT INFORMATION
  Report Type: 
  Country: None (occurrence: None)
  Receive Date: 20060525
  Receipt Date: 20060512
  Transmission Date: 20061013
  Serious: Yes (Hospitalization, Other)
  Sender: FDA-Public Use
  Company Number: 2006065365

PATIENT
  Age: 29 Year
  Sex: Male
  Weight: 147.419 kg

DRUGS (2)
  1. BEXTRA [Suspect]
     Indication: ARTHRALGIA
     Dosage: (10 MG)
     Dates: start: 20030801, end: 20040101
  2. BEXTRA [Suspect]
     Indication: LIGAMENT INJURY
     Dosage: (10 MG)
     Dates: start: 20030801, end: 20040101

REACTIONS (6)
  - CELLULITIS [None]
  - LYMPHANGITIS [None]
  - PATHOGEN RESISTANCE [None]
  - SEPSIS [None]
  - STAPHYLOCOCCAL INFECTION [None]
  - STEVENS-JOHNSON SYNDROME [None]
